FAERS Safety Report 20447081 (Version 5)
Quarter: 2024Q2

REPORT INFORMATION
  Report Type: Report from Study
  Country: US (occurrence: US)
  Receive Date: 20220209
  Receipt Date: 20240412
  Transmission Date: 20240716
  Serious: No
  Sender: FDA-Public Use
  Company Number: US-ABBVIE-22K-163-4263777-00

PATIENT
  Age: 59 Year
  Sex: Female
  Weight: 63.5 kg

DRUGS (14)
  1. HUMIRA [Suspect]
     Active Substance: ADALIMUMAB
     Indication: Crohn^s disease
     Dosage: CITRATE FREE?40 MILLIGRAM
     Route: 058
     Dates: start: 2015
  2. HUMIRA [Suspect]
     Active Substance: ADALIMUMAB
     Dosage: CITRATE FREE?40 MILLIGRAM
     Route: 058
  3. HUMIRA [Suspect]
     Active Substance: ADALIMUMAB
     Dosage: CITRATE FREE?40 MILLIGRAM
     Route: 058
  4. HUMIRA [Suspect]
     Active Substance: ADALIMUMAB
     Dosage: CITRATE FREE?40 MILLIGRAM
     Route: 058
  5. HUMIRA [Suspect]
     Active Substance: ADALIMUMAB
     Dosage: CITRATE FREE?40 MILLIGRAM
     Route: 058
  6. MODERNA COVID-19 VACCINE [Concomitant]
     Active Substance: ELASOMERAN
     Indication: COVID-19 immunisation
     Dosage: FIRST DOSE?ONE IN ONCE
     Route: 030
     Dates: start: 20210313, end: 20210313
  7. MODERNA COVID-19 VACCINE [Concomitant]
     Active Substance: ELASOMERAN
     Indication: COVID-19 immunisation
     Dosage: SECOND DOSE?ONE IN ONCE
     Route: 030
     Dates: start: 20210410, end: 20210410
  8. MODERNA COVID-19 VACCINE [Concomitant]
     Active Substance: ELASOMERAN
     Indication: COVID-19 immunisation
     Dosage: THIRD DOSE?ONE IN ONCE
     Route: 030
     Dates: start: 20210828, end: 20210828
  9. MODERNA COVID-19 VACCINE [Concomitant]
     Active Substance: ELASOMERAN
     Indication: COVID-19 immunisation
     Dosage: FOURTH DOSE (BOOSTER DOSE)?ONE IN ONCE
     Route: 030
     Dates: start: 20220408, end: 20220408
  10. IRON [Concomitant]
     Active Substance: IRON
     Indication: Anaemia
  11. ALBUTEROL [Concomitant]
     Active Substance: ALBUTEROL
     Indication: Asthma
  12. PROLIA [Concomitant]
     Active Substance: DENOSUMAB
     Indication: Osteoporosis
  13. PROVENTIL [Concomitant]
     Active Substance: ALBUTEROL
     Indication: Asthma
  14. AZELASTINE [Concomitant]
     Active Substance: AZELASTINE\AZELASTINE HYDROCHLORIDE
     Indication: Asthma

REACTIONS (12)
  - Spinal deformity [Unknown]
  - Dizziness [Recovered/Resolved]
  - Crohn^s disease [Recovered/Resolved]
  - Feeling abnormal [Unknown]
  - Dizziness [Not Recovered/Not Resolved]
  - Neuropathy peripheral [Unknown]
  - White blood cell count increased [Not Recovered/Not Resolved]
  - Bone pain [Recovering/Resolving]
  - Pain [Unknown]
  - Pain in extremity [Recovering/Resolving]
  - Arthralgia [Recovering/Resolving]
  - Back pain [Unknown]

NARRATIVE: CASE EVENT DATE: 20220401
